FAERS Safety Report 11703384 (Version 2)
Quarter: 2017Q4

REPORT INFORMATION
  Report Type: Spontaneous
  Country: US (occurrence: US)
  Receive Date: 20151105
  Receipt Date: 20171018
  Transmission Date: 20180320
  Serious: Yes (Other)
  Sender: FDA-Public Use
  Company Number: US-DSJP-DSU-2015-127910

PATIENT

DRUGS (2)
  1. BENICAR HCT [Suspect]
     Active Substance: HYDROCHLOROTHIAZIDE\OLMESARTAN MEDOXOMIL
     Indication: HYPERTENSION
     Dosage: 40/12.5 MG, QD
     Dates: start: 2010, end: 201303
  2. BENICAR [Suspect]
     Active Substance: OLMESARTAN MEDOXOMIL
     Indication: HYPERTENSION
     Dosage: UNK
     Dates: start: 2006, end: 2010

REACTIONS (18)
  - Central venous catheterisation [Unknown]
  - Haemorrhoids [Unknown]
  - Malabsorption [Unknown]
  - Constipation [Unknown]
  - Disability [Unknown]
  - Diverticulum [Unknown]
  - Acute kidney injury [Unknown]
  - Depression [Unknown]
  - Dizziness [Recovered/Resolved]
  - Lactose intolerance [Not Recovered/Not Resolved]
  - Pulmonary embolism [Unknown]
  - Gastrooesophageal reflux disease [Unknown]
  - Pneumonia [Unknown]
  - Dyspepsia [Unknown]
  - Crohn^s disease [Unknown]
  - Hiatus hernia [Unknown]
  - Abdominal pain upper [Unknown]
  - Polyp [Unknown]

NARRATIVE: CASE EVENT DATE: 2006
